FAERS Safety Report 9858183 (Version 3)
Quarter: 2014Q2

REPORT INFORMATION
  Report Type: Spontaneous
  Country: US (occurrence: US)
  Receive Date: 20140131
  Receipt Date: 20140415
  Transmission Date: 20141212
  Serious: No
  Sender: FDA-Public Use
  Company Number: US-009507513-1401USA014631

PATIENT
  Age: 81 Year
  Sex: Female
  Weight: 77.98 kg

DRUGS (1)
  1. OXYTROL FOR WOMEN [Suspect]
     Indication: HYPERTONIC BLADDER
     Dosage: UNK, UNKNOWN
     Route: 062
     Dates: start: 20140119, end: 20140219

REACTIONS (3)
  - Depression [Unknown]
  - Drug ineffective [Unknown]
  - Drug effect decreased [Unknown]
